FAERS Safety Report 5527256-6 (Version None)
Quarter: 2007Q4

REPORT INFORMATION
  Report Type: 
  Country: None (occurrence: None)
  Receive Date: 20071128
  Receipt Date: 20071120
  Transmission Date: 20080405
  Serious: Yes (Hospitalization)
  Sender: FDA-Public Use
  Company Number: A0686764A

PATIENT
  Age: 71 Year
  Sex: Female

DRUGS (7)
  1. TOPOTECAN [Suspect]
     Indication: UTERINE CANCER
     Dosage: 1.25MG PER DAY
     Route: 048
     Dates: start: 20070925, end: 20071003
  2. XANAX [Concomitant]
     Dosage: .25MG AT NIGHT
  3. ZIAC [Concomitant]
     Dosage: 5MG PER DAY
  4. ATIVAN [Concomitant]
     Dosage: 1MG AT NIGHT
  5. ZOFRAN [Concomitant]
     Dosage: 8MG THREE TIMES PER DAY
  6. PERCOCET [Concomitant]
  7. PHENERGAN HCL [Concomitant]
     Dosage: 25MG FOUR TIMES PER DAY

REACTIONS (7)
  - ANAEMIA [None]
  - DEHYDRATION [None]
  - HYPOKALAEMIA [None]
  - NAUSEA [None]
  - POLLAKIURIA [None]
  - VAGINAL HAEMORRHAGE [None]
  - VOMITING [None]
